FAERS Safety Report 19255058 (Version 2)
Quarter: 2021Q3

REPORT INFORMATION
  Report Type: Spontaneous
  Country: US (occurrence: US)
  Receive Date: 20210513
  Receipt Date: 20210830
  Transmission Date: 20211014
  Serious: Yes (Death, Other)
  Sender: FDA-Public Use
  Company Number: US-INCYTE CORPORATION-2021IN004194

PATIENT

DRUGS (5)
  1. JAKAFI [Suspect]
     Active Substance: RUXOLITINIB
     Dosage: 15 MILLIGRAM, BID
     Route: 065
     Dates: start: 20210419
  2. JAKAFI [Suspect]
     Active Substance: RUXOLITINIB
     Dosage: 10 MILLIGRAM, BID
     Route: 065
     Dates: start: 20210322
  3. JAKAFI [Suspect]
     Active Substance: RUXOLITINIB
     Dosage: 15 MILLIGRAM, BID
     Route: 048
  4. JAKAFI [Suspect]
     Active Substance: RUXOLITINIB
     Indication: ESSENTIAL THROMBOCYTHAEMIA
     Dosage: 5 MILLIGRAM, BID
     Route: 065
     Dates: start: 20210131
  5. JAKAFI [Suspect]
     Active Substance: RUXOLITINIB
     Dosage: 1 DOSAGE FORM (TABLET), BID
     Route: 048
     Dates: start: 20210208

REACTIONS (4)
  - Thrombocytopenia [Unknown]
  - Cerebral haemorrhage [Fatal]
  - Myeloproliferative neoplasm [Unknown]
  - Off label use [Unknown]

NARRATIVE: CASE EVENT DATE: 20210131
